FAERS Safety Report 21324410 (Version 2)
Quarter: 2022Q3

REPORT INFORMATION
  Report Type: Spontaneous
  Country: CN (occurrence: CN)
  Receive Date: 20220912
  Receipt Date: 20220919
  Transmission Date: 20221026
  Serious: No
  Sender: FDA-Public Use
  Company Number: CN-MLMSERVICE-20220826-3760147-1

PATIENT
  Age: 63 Year
  Sex: Male

DRUGS (6)
  1. PIPERACILLIN SODIUM\TAZOBACTAM SODIUM [Suspect]
     Active Substance: PIPERACILLIN SODIUM\TAZOBACTAM SODIUM
     Indication: Gastrointestinal infection
     Dosage: UNK
  2. RIFAXIMIN [Suspect]
     Active Substance: RIFAXIMIN
     Indication: Gastrointestinal infection
     Dosage: UNK
  3. DEXAMETHASONE [Suspect]
     Active Substance: DEXAMETHASONE
     Indication: Urticaria
     Dosage: UNK
  4. ETIMICIN SULFATE [Suspect]
     Active Substance: ETIMICIN SULFATE
     Indication: Gastrointestinal infection
     Dosage: UNK
  5. ASTEMIZOLE [Concomitant]
     Active Substance: ASTEMIZOLE
     Indication: Pruritus
     Dosage: UNK
  6. BERBERINE [Concomitant]
     Active Substance: BERBERINE
     Indication: Gastrointestinal infection
     Dosage: UNK

REACTIONS (2)
  - Therapeutic response unexpected [Unknown]
  - Acute myeloid leukaemia (in remission) [Unknown]
